FAERS Safety Report 12339995 (Version 3)
Quarter: 2016Q3

REPORT INFORMATION
  Report Type: Spontaneous
  Country: US (occurrence: US)
  Receive Date: 20160506
  Receipt Date: 20160919
  Transmission Date: 20161109
  Serious: No
  Sender: FDA-Public Use
  Company Number: US-009507513-1604USA014743

PATIENT
  Age: 25 Year
  Sex: Female
  Weight: 148.75 kg

DRUGS (1)
  1. NEXPLANON [Suspect]
     Active Substance: ETONOGESTREL
     Indication: CONTRACEPTION
     Dosage: 68 MG/THREE YEARS
     Route: 059
     Dates: start: 20160411, end: 2016

REACTIONS (5)
  - Implant site infection [Unknown]
  - Product use issue [Unknown]
  - Device expulsion [Recovered/Resolved]
  - Implant site pain [Unknown]
  - Implant site erythema [Unknown]

NARRATIVE: CASE EVENT DATE: 2016
